FAERS Safety Report 9738398 (Version 3)
Quarter: 2016Q3

REPORT INFORMATION
  Report Type: Report from Study
  Country: DE (occurrence: DE)
  Receive Date: 20131208
  Receipt Date: 20160708
  Transmission Date: 20161109
  Serious: Yes (Hospitalization)
  Sender: FDA-Public Use
  Company Number: DE-ROCHE-1314185

PATIENT
  Age: 70 Year
  Sex: Female

DRUGS (4)
  1. L-THYROXIN [Concomitant]
     Active Substance: LEVOTHYROXINE SODIUM
  2. METHOTREXATE. [Concomitant]
     Active Substance: METHOTREXATE
     Indication: RHEUMATOID ARTHRITIS
     Route: 065
  3. CANDESARTAN [Concomitant]
     Active Substance: CANDESARTAN
  4. RITUXIMAB [Suspect]
     Active Substance: RITUXIMAB
     Indication: RHEUMATOID ARTHRITIS
     Dosage: LAST DOSE OF RITUXIMAB PRIOR TO INFUSION WAS ON 26/FEB/2013.
     Route: 042

REACTIONS (1)
  - Hypertensive crisis [Not Recovered/Not Resolved]

NARRATIVE: CASE EVENT DATE: 201311
